FAERS Safety Report 19389350 (Version 1)
Quarter: 2021Q2

REPORT INFORMATION
  Report Type: Spontaneous
  Country: DE (occurrence: DE)
  Receive Date: 20210607
  Receipt Date: 20210607
  Transmission Date: 20210717
  Serious: Yes (Hospitalization)
  Sender: FDA-Public Use
  Company Number: DE-JNJFOC-20210613538

PATIENT
  Age: 77 Year
  Sex: Male

DRUGS (6)
  1. XARELTO [Suspect]
     Active Substance: RIVAROXABAN
     Indication: PRODUCT USED FOR UNKNOWN INDICATION
     Dosage: 20 MG, OM
     Route: 048
  2. TORASEMID [Suspect]
     Active Substance: TORSEMIDE
     Dosage: 5 MG, OM
     Route: 048
  3. ALLOPURINOL. [Concomitant]
     Active Substance: ALLOPURINOL
     Dosage: 150 MG, OM
     Route: 048
  4. METOPROLOL. [Suspect]
     Active Substance: METOPROLOL
     Dosage: 95 MG, BID
     Route: 048
  5. EZETIMIBE. [Concomitant]
     Active Substance: EZETIMIBE
     Dosage: 10 MG, OM
     Route: 048
  6. EPLERENONE. [Concomitant]
     Active Substance: EPLERENONE
     Dosage: 25 MG, PRN
     Route: 048

REACTIONS (2)
  - Traumatic haemothorax [Unknown]
  - Fall [Unknown]
